FAERS Safety Report 21820161 (Version 4)
Quarter: 2023Q2

REPORT INFORMATION
  Report Type: Report from Study
  Country: US (occurrence: US)
  Receive Date: 20230105
  Receipt Date: 20230401
  Transmission Date: 20230721
  Serious: No
  Sender: FDA-Public Use
  Company Number: US-002147023-NVSC2023US001511

PATIENT
  Sex: Female

DRUGS (2)
  1. ENTRESTO [Suspect]
     Active Substance: SACUBITRIL\VALSARTAN
     Indication: Product used for unknown indication
     Dosage: 1 DOSAGE FORM, BID (24/26 MG)
     Route: 048
     Dates: start: 20221231
  2. ENTRESTO [Suspect]
     Active Substance: SACUBITRIL\VALSARTAN
     Dosage: 2 DOSAGE FORM (IN THE EVENING)
     Route: 065

REACTIONS (7)
  - Paraesthesia [Recovering/Resolving]
  - Tachycardia [Unknown]
  - Yawning [Unknown]
  - Dyspnoea [Unknown]
  - Ejection fraction abnormal [Not Recovered/Not Resolved]
  - Hypotension [Unknown]
  - Dizziness [Unknown]
